FAERS Safety Report 5752999-9 (Version None)
Quarter: 2008Q2

REPORT INFORMATION
  Report Type: 
  Country: None (occurrence: None)
  Receive Date: 20080527
  Receipt Date: 20080515
  Transmission Date: 20081010
  Serious: Yes (Other)
  Sender: FDA-Public Use
  Company Number: GXKR2007SE06971

PATIENT
  Age: 82 Year
  Sex: Female

DRUGS (1)
  1. SPARKAL                 (AMILORIDE, HYDROCHLOROTHIAZIDE) UNKNOWN [Suspect]
     Indication: HYPERTENSION
     Dosage: ORAL
     Route: 048

REACTIONS (4)
  - AMNESIA [None]
  - ELECTROLYTE IMBALANCE [None]
  - LOSS OF CONSCIOUSNESS [None]
  - MUSCLE SPASMS [None]
